FAERS Safety Report 12955804 (Version 1)
Quarter: 2016Q4

REPORT INFORMATION
  Report Type: Spontaneous
  Country: US (occurrence: US)
  Receive Date: 20161118
  Receipt Date: 20161118
  Transmission Date: 20170207
  Serious: No
  Sender: FDA-Public Use
  Company Number: US-GLAXOSMITHKLINE-US2016169712

PATIENT
  Age: 66 Year
  Sex: Female

DRUGS (13)
  1. ASPIRIN (BABY) [Concomitant]
     Active Substance: ASPIRIN
  2. VITAMIN B COMPLEX [Concomitant]
     Active Substance: CYANOCOBALAMIN\DEXPANTHENOL\NIACINAMIDE\PYRIDOXINE HYDROCHLORIDE\RIBOFLAVIN 5^-PHOSPHATE SODIUM\THIAMINE HYDROCHLORIDE\VITAMIN B COMPLEX
  3. VENTOLIN HFA [Suspect]
     Active Substance: ALBUTEROL SULFATE
     Indication: WHEEZING
     Dosage: 2 PUFF(S), PRN
     Dates: start: 20161115
  4. CRANBERRY EXTRACT [Concomitant]
     Active Substance: CRANBERRY JUICE
  5. LANTUS [Concomitant]
     Active Substance: INSULIN GLARGINE
  6. VITAMIN D [Concomitant]
     Active Substance: CHOLECALCIFEROL
  7. VITAMIN C [Concomitant]
     Active Substance: ASCORBIC ACID
  8. TORSEMIDE. [Concomitant]
     Active Substance: TORSEMIDE
  9. MILK THISTLE [Concomitant]
     Active Substance: MILK THISTLE
  10. NOVOLOG [Concomitant]
     Active Substance: INSULIN ASPART
  11. CALCIUM CARBONATE. [Concomitant]
     Active Substance: CALCIUM CARBONATE
  12. MAGNESIUM [Concomitant]
     Active Substance: MAGNESIUM
  13. NADOLOL. [Concomitant]
     Active Substance: NADOLOL

REACTIONS (2)
  - Oropharyngeal pain [Not Recovered/Not Resolved]
  - Hypoaesthesia oral [Not Recovered/Not Resolved]

NARRATIVE: CASE EVENT DATE: 20161115
